FAERS Safety Report 24858009 (Version 6)
Quarter: 2025Q4

REPORT INFORMATION
  Report Type: Spontaneous
  Country: US (occurrence: US)
  Receive Date: 20250117
  Receipt Date: 20251127
  Transmission Date: 20260119
  Serious: Yes (Other)
  Sender: SANOFI AVENTIS
  Company Number: US-SA-2025SA014789

PATIENT
  Age: 65 Year
  Sex: Male

DRUGS (2)
  1. KEVZARA [Suspect]
     Active Substance: SARILUMAB
     Indication: Polymyalgia rheumatica
     Dosage: 200 MG, QOW
     Route: 058
     Dates: start: 202411
  2. JARDIANCE [Concomitant]
     Active Substance: EMPAGLIFLOZIN
     Dosage: UNK

REACTIONS (6)
  - Polymyalgia rheumatica [Unknown]
  - Bell^s palsy [Unknown]
  - Headache [Unknown]
  - Illness [Unknown]
  - Respiratory disorder [Unknown]
  - Furuncle [Unknown]
